FAERS Safety Report 18473866 (Version 2)
Quarter: 2020Q4

REPORT INFORMATION
  Report Type: Report from Study
  Country: US (occurrence: US)
  Receive Date: 20201106
  Receipt Date: 20201130
  Transmission Date: 20210114
  Serious: Yes (Other)
  Sender: FDA-Public Use
  Company Number: US-PUMA BIOTECHNOLOGY, LTD.-2020US006649

PATIENT

DRUGS (1)
  1. NERLYNX [Suspect]
     Active Substance: NERATINIB
     Indication: BREAST CANCER FEMALE
     Dosage: 240 MG (6 TABLETS), DAILY
     Route: 048
     Dates: start: 20201016, end: 202010

REACTIONS (5)
  - Blood magnesium decreased [Unknown]
  - Blood urea nitrogen/creatinine ratio increased [Unknown]
  - Blood potassium decreased [Unknown]
  - White blood cell count increased [Unknown]
  - Hepatic enzyme increased [Not Recovered/Not Resolved]

NARRATIVE: CASE EVENT DATE: 202010
